FAERS Safety Report 25581667 (Version 2)
Quarter: 2025Q3

REPORT INFORMATION
  Report Type: Spontaneous
  Country: US (occurrence: US)
  Receive Date: 20250719
  Receipt Date: 20250914
  Transmission Date: 20251021
  Serious: No
  Sender: SANOFI AVENTIS
  Company Number: US-SA-2025SA204258

PATIENT
  Sex: Female
  Weight: 74.38 kg

DRUGS (4)
  1. DUPIXENT [Suspect]
     Active Substance: DUPILUMAB
     Indication: Asthma
     Dosage: 300 MG, QOW
     Route: 058
  2. ZEPBOUND [Concomitant]
     Active Substance: TIRZEPATIDE
  3. AMOXICILLIN [Concomitant]
     Active Substance: AMOXICILLIN
  4. FLUTICASONE PROPIONATE [Concomitant]
     Active Substance: FLUTICASONE PROPIONATE

REACTIONS (6)
  - Ocular discomfort [Unknown]
  - Drug hypersensitivity [Unknown]
  - Asthenopia [Unknown]
  - Pruritus [Unknown]
  - Urticaria [Recovering/Resolving]
  - Headache [Unknown]
